FAERS Safety Report 9752503 (Version 2)
Quarter: 2013Q4

REPORT INFORMATION
  Report Type: Report from Study
  Country: US (occurrence: US)
  Receive Date: 20131213
  Receipt Date: 20131213
  Transmission Date: 20140711
  Serious: Yes (Other)
  Sender: FDA-Public Use
  Company Number: US-SA-2013SA110700

PATIENT
  Age: 41 Year
  Sex: Male
  Weight: 76.2 kg

DRUGS (4)
  1. AUBAGIO [Suspect]
     Indication: MULTIPLE SCLEROSIS
     Dosage: TAKEN FROM: 71 DAYS AGO DOSE:1 UNIT(S)
     Route: 048
     Dates: start: 20130819
  2. ALL OTHER THERAPEUTIC PRODUCTS [Concomitant]
     Indication: HYPERTENSION
     Route: 048
     Dates: start: 2012
  3. NORTRIPTYLINE [Concomitant]
     Indication: DEPRESSION
     Route: 048
     Dates: start: 2012
  4. MAXALT [Concomitant]
     Route: 048
     Dates: start: 2013

REACTIONS (2)
  - Osteonecrosis [Unknown]
  - Contusion [Unknown]
